FAERS Safety Report 5104928-9 (Version None)
Quarter: 2006Q3

REPORT INFORMATION
  Report Type: 
  Country: None (occurrence: None)
  Receive Date: 20060908
  Receipt Date: 20060908
  Transmission Date: 20061208
  Serious: Yes (Death, Hospitalization)
  Sender: FDA-Public Use
  Company Number: None

PATIENT
  Sex: Female
  Weight: 102.6 kg

DRUGS (3)
  1. ELOXATIN [Suspect]
     Dosage: 180 MG
     Dates: start: 20060724
  2. FLUOROURACIL [Suspect]
     Dosage: 4675 MG
     Route: 040
     Dates: start: 20060726
  3. LEUCOVORIN CALCIUM [Suspect]
     Dosage: 850 MG
     Dates: start: 20060724

REACTIONS (11)
  - ACIDOSIS [None]
  - ARRHYTHMIA [None]
  - CHEST PAIN [None]
  - DILATATION VENTRICULAR [None]
  - DYSPNOEA [None]
  - HYPOXIA [None]
  - LUNG INFILTRATION [None]
  - ORTHOSTATIC HYPOTENSION [None]
  - PULMONARY EMBOLISM [None]
  - TACHYCARDIA [None]
  - VAGINAL HAEMORRHAGE [None]
